FAERS Safety Report 10179240 (Version 1)
Quarter: 2014Q2

REPORT INFORMATION
  Report Type: Spontaneous
  Country: US (occurrence: None)
  Receive Date: 20140416
  Receipt Date: 20140416
  Transmission Date: 20141212
  Serious: Yes (Other)
  Sender: FDA-Public Use
  Company Number: 163-POMAL-13122784

PATIENT
  Age: 76 Year
  Sex: Female
  Weight: 64.86 kg

DRUGS (9)
  1. POMALYST [Suspect]
     Indication: PLASMA CELL MYELOMA
     Dosage: 21 IN 28 D
     Route: 048
     Dates: start: 20131113
  2. ASPIRINE (ACETYLSALICYLIC ACID) [Concomitant]
  3. ATENOLOL [Concomitant]
  4. CALCIUM 600 + D (LEKOVIT CA) [Concomitant]
  5. CYANOCOBALAMIN [Concomitant]
  6. DEXAMETHASONE [Concomitant]
  7. HYDROCHLOROTHIAZIDE [Concomitant]
  8. LEVOTHYROXINE [Concomitant]
  9. POTASSIUM [Concomitant]

REACTIONS (3)
  - Peripheral swelling [None]
  - Pain in extremity [None]
  - Plasma cell myeloma [None]
